FAERS Safety Report 18854808 (Version 1)
Quarter: 2021Q1

REPORT INFORMATION
  Report Type: Report from Study
  Country: US (occurrence: US)
  Receive Date: 20210205
  Receipt Date: 20210205
  Transmission Date: 20210420
  Serious: Yes (Hospitalization)
  Sender: FDA-Public Use
  Company Number: US-JNJFOC-A-NJ2020-205670

PATIENT
  Age: 67 Year
  Sex: Male
  Weight: 97.51 kg

DRUGS (26)
  1. LEVOTHYROXINE. [Concomitant]
     Active Substance: LEVOTHYROXINE
     Dosage: 50 MCG, BID
     Route: 048
  2. SPIRONOLACTONE. [Concomitant]
     Active Substance: SPIRONOLACTONE
     Dosage: 25 MG, BID
  3. SODIUM CHLORIDE. [Concomitant]
     Active Substance: SODIUM CHLORIDE
     Dosage: 2 DROPS NASAL AS NEEDED
  4. IPRATROPIUM/ALBUTEROL [Concomitant]
     Active Substance: ALBUTEROL\IPRATROPIUM
     Dosage: 3 ML, BID
     Route: 055
  5. GLUCOPHAGE [Concomitant]
     Active Substance: METFORMIN HYDROCHLORIDE
     Dosage: 500 MG, BID
     Route: 048
  6. ZAROXOLYN [Concomitant]
     Active Substance: METOLAZONE
     Dosage: 5 MG, QD
  7. MAGNESIUM OXIDE. [Concomitant]
     Active Substance: MAGNESIUM OXIDE
     Dosage: 400 MG
     Route: 048
  8. ACETAMINOPHEN. [Concomitant]
     Active Substance: ACETAMINOPHEN
     Dosage: 650 MG EVERY 8 HOURS FOR 7 DAYS
  9. ATORVASTATIN [Concomitant]
     Active Substance: ATORVASTATIN
     Dosage: 40 MG, QD
  10. REVATIO [Concomitant]
     Active Substance: SILDENAFIL CITRATE
     Dosage: 20 MG, TID
     Route: 048
  11. DEMADEX [Concomitant]
     Active Substance: TORSEMIDE
     Dosage: 20 MG, BID
     Route: 048
  12. UPTRAVI [Suspect]
     Active Substance: SELEXIPAG
     Dosage: 400 MCG, BID
     Route: 048
  13. METOLAZONE. [Concomitant]
     Active Substance: METOLAZONE
  14. SITAGLIPTIN [Concomitant]
     Active Substance: SITAGLIPTIN
     Dosage: 100 MG, QD
     Route: 048
  15. LIPITOR [Concomitant]
     Active Substance: ATORVASTATIN CALCIUM
     Dosage: 40 MG, QPM
  16. LEVOFLOXACIN. [Concomitant]
     Active Substance: LEVOFLOXACIN
     Dosage: 750 MG EVERY 48 HOURS FOR 4 DAYS
  17. ASPIRIN 81 [Concomitant]
     Active Substance: ASPIRIN
     Dosage: 81 MG, QD
  18. DILTIAZEM. [Concomitant]
     Active Substance: DILTIAZEM
     Dosage: 180MG/24 HOURS 1 CAPSULE QD
  19. KLOR?CON [Concomitant]
     Active Substance: POTASSIUM CHLORIDE
     Dosage: 40 MEQ, BID
  20. ALBUTEROL;IPRATROPIUM [Concomitant]
     Active Substance: ALBUTEROL\IPRATROPIUM
     Dosage: 3 ML IMHALE 4 TIMES A DAY
  21. OPSUMIT [Suspect]
     Active Substance: MACITENTAN
     Indication: PULMONARY HYPERTENSION
     Dosage: 10 MG, QD
     Route: 048
     Dates: start: 20200427
  22. UPTRAVI [Suspect]
     Active Substance: SELEXIPAG
     Indication: PULMONARY HYPERTENSION
     Dosage: 1200 MCG, BID
     Route: 048
     Dates: start: 20200427, end: 202007
  23. KLOR?CON [Concomitant]
     Active Substance: POTASSIUM CHLORIDE
     Dosage: 20 MEQ, QD
  24. BUMETANIDE. [Concomitant]
     Active Substance: BUMETANIDE
     Dosage: 1 MG, BID
     Route: 048
  25. ASPIRIN E.C [Concomitant]
     Active Substance: ASPIRIN
     Dosage: 81 MG, QAM
  26. DILTIAZEM CD [Concomitant]
     Active Substance: DILTIAZEM
     Dosage: 180 MG, QD
     Route: 048

REACTIONS (39)
  - Cardiac failure acute [Recovering/Resolving]
  - Pulmonary hypertension [Recovering/Resolving]
  - Prothrombin time prolonged [Recovering/Resolving]
  - Oedema peripheral [Recovering/Resolving]
  - Blood chloride decreased [Recovering/Resolving]
  - Carbon dioxide increased [Recovering/Resolving]
  - Blood parathyroid hormone increased [Unknown]
  - Hospitalisation [Unknown]
  - Blood glucose increased [Recovering/Resolving]
  - Blood urea increased [Recovering/Resolving]
  - N-terminal prohormone brain natriuretic peptide increased [Recovering/Resolving]
  - Aspiration pleural cavity [Unknown]
  - Supraventricular tachycardia [Recovering/Resolving]
  - Hyponatraemia [Recovering/Resolving]
  - Blood magnesium increased [Recovering/Resolving]
  - High density lipoprotein decreased [Recovering/Resolving]
  - Red blood cell count decreased [Recovering/Resolving]
  - Pleural effusion [Recovering/Resolving]
  - Haemoglobin decreased [Unknown]
  - Blood sodium decreased [Unknown]
  - Alpha 2 globulin increased [Recovering/Resolving]
  - Respiratory failure [Recovering/Resolving]
  - Atelectasis [Recovering/Resolving]
  - Gait disturbance [Recovering/Resolving]
  - Right ventricular failure [Recovering/Resolving]
  - Cardiorenal syndrome [Recovering/Resolving]
  - Blood gases abnormal [Recovering/Resolving]
  - Fluid overload [Recovered/Resolved]
  - Dyspnoea [Unknown]
  - Cardiac failure congestive [Recovering/Resolving]
  - Chronic kidney disease [Recovering/Resolving]
  - Blood creatinine increased [Recovering/Resolving]
  - Urine sodium decreased [Recovering/Resolving]
  - Chronic obstructive pulmonary disease [Recovering/Resolving]
  - Left ventricular dysfunction [Recovering/Resolving]
  - Type 2 diabetes mellitus [Recovering/Resolving]
  - Acute kidney injury [Recovering/Resolving]
  - Haematocrit decreased [Recovering/Resolving]
  - Lung opacity [Recovering/Resolving]

NARRATIVE: CASE EVENT DATE: 20200427
